FAERS Safety Report 11008545 (Version 1)
Quarter: 2015Q2

REPORT INFORMATION
  Report Type: Spontaneous
  Country: NL (occurrence: None)
  Receive Date: 20150408
  Receipt Date: 20150408
  Transmission Date: 20150821
  Serious: Yes (Other)
  Sender: FDA-Public Use
  Company Number: 2809498

PATIENT
  Age: 47 Year
  Sex: Female

DRUGS (2)
  1. IDARUBICIN [Suspect]
     Active Substance: IDARUBICIN
     Indication: ACUTE MYELOID LEUKAEMIA
     Dosage: 10  MG/M2/SQ. METER,
  2. CYTARABINE. [Suspect]
     Active Substance: CYTARABINE
     Indication: ACUTE MYELOID LEUKAEMIA
     Dosage: 100  MG/M2/SQ. METER,

REACTIONS (6)
  - Hyperbilirubinaemia [None]
  - Febrile neutropenia [None]
  - Systemic candida [None]
  - Gastrointestinal inflammation [None]
  - Cholecystitis [None]
  - Neutropenic colitis [None]
